FAERS Safety Report 4911174-8 (Version None)
Quarter: 2006Q1

REPORT INFORMATION
  Report Type: 
  Country: None (occurrence: None)
  Receive Date: 20060214
  Receipt Date: 20060208
  Transmission Date: 20060701
  Serious: Yes (Hospitalization)
  Sender: FDA-Public Use
  Company Number: US-BRISTOL-MYERS SQUIBB COMPANY-13277371

PATIENT
  Age: 87 Year
  Sex: Female

DRUGS (2)
  1. TEQUIN [Suspect]
     Indication: URINARY TRACT INFECTION
     Route: 048
  2. GLYBURIDE [Concomitant]

REACTIONS (1)
  - DIABETIC COMA [None]
